FAERS Safety Report 9928672 (Version 1)
Quarter: 2014Q1

REPORT INFORMATION
  Report Type: Spontaneous
  Country: CN (occurrence: None)
  Receive Date: 20140224
  Receipt Date: 20140224
  Transmission Date: 20141002
  Serious: Yes (Death)
  Sender: FDA-Public Use
  Company Number: 2014CN00151

PATIENT
  Sex: 0

DRUGS (2)
  1. GEMCITABINE (GEMCITABINE) INJECTION [Suspect]
     Indication: NON-SMALL CELL LUNG CANCER
     Dosage: 1000 MG/M2, ON DAY 1 AND DAY 8 OF 3-WEEK SCHEDULE FOR UP TO SIX CYCLES, INTRAVENOUS
     Route: 042
  2. CISPLATIN (CISPLATIN) [Suspect]
     Indication: NON-SMALL CELL LUNG CANCER
     Dosage: 75 MG/M2, ON DAY 1 OF A 3-WEEK SCHEDULE FOR UP TO SIX CYCLES

REACTIONS (1)
  - Cardiac failure [None]
